APPROVED DRUG PRODUCT: CARBIDOPA
Active Ingredient: CARBIDOPA
Strength: 25MG
Dosage Form/Route: TABLET;ORAL
Application: A203261 | Product #001
Applicant: ANI PHARMACEUTICALS INC
Approved: Mar 10, 2014 | RLD: No | RS: No | Type: DISCN